FAERS Safety Report 8688027 (Version 7)
Quarter: 2014Q2

REPORT INFORMATION
  Report Type: Report from Study
  Country: GB (occurrence: GB)
  Receive Date: 20120727
  Receipt Date: 20140522
  Transmission Date: 20141212
  Serious: Yes (Death, Hospitalization, Other)
  Sender: FDA-Public Use
  Company Number: GB-ROCHE-1090801

PATIENT
  Age: 86 Year
  Sex: Female
  Weight: 62.2 kg

DRUGS (15)
  1. RANIBIZUMAB [Suspect]
     Indication: AGE-RELATED MACULAR DEGENERATION
     Route: 050
     Dates: start: 20110729, end: 20131213
  2. RANIBIZUMAB [Suspect]
     Route: 050
     Dates: start: 20120601
  3. RANIBIZUMAB [Suspect]
     Route: 050
     Dates: start: 20120713
  4. RANIBIZUMAB [Suspect]
     Route: 050
     Dates: start: 20131213
  5. AMLODIPINE [Concomitant]
  6. RHUS TOXICODENDRON [Concomitant]
  7. ATORVASTATIN [Concomitant]
  8. DILTIAZEM [Concomitant]
     Route: 065
     Dates: start: 20110330
  9. ASPIRIN [Concomitant]
  10. CETIRIZINE HYDROCHLORIDE [Concomitant]
     Route: 065
     Dates: start: 20120713
  11. DIGOXIN [Concomitant]
     Route: 065
     Dates: start: 20110330
  12. CARBOCISTEINE [Concomitant]
     Route: 065
     Dates: start: 20120713
  13. SIMVASTATIN [Concomitant]
     Route: 065
     Dates: start: 20120108
  14. CO-AMILORIDE [Concomitant]
     Route: 065
     Dates: start: 20110330
  15. LANSOPRAZOLE [Concomitant]

REACTIONS (5)
  - Cerebral infarction [Fatal]
  - Transient ischaemic attack [Recovered/Resolved]
  - Carotid artery occlusion [Recovered/Resolved with Sequelae]
  - Cerebrovascular accident [Not Recovered/Not Resolved]
  - Hypoaesthesia [Not Recovered/Not Resolved]
